FAERS Safety Report 8338063-3 (Version None)
Quarter: 2012Q2

REPORT INFORMATION
  Report Type: 
  Country: None (occurrence: None)
  Receive Date: 20120504
  Receipt Date: 20120424
  Transmission Date: 20120825
  Serious: Yes (Other)
  Sender: FDA-Public Use
  Company Number: US-JNJFOC-20120411897

PATIENT
  Age: 24 Year
  Sex: Female

DRUGS (42)
  1. VINBLASTINE [Suspect]
     Route: 042
  2. CYCLOPHOSPHAMIDE [Suspect]
     Indication: OVARIAN CANCER
     Route: 042
  3. BLEOMYCIN SULFATE [Suspect]
     Route: 042
  4. ETOPOSIDE [Suspect]
     Route: 042
  5. PEGFILGRASTIM [Concomitant]
     Route: 065
  6. DOXORUBICIN HCL [Suspect]
     Dosage: CYCLE 4
     Route: 042
  7. CISPLATIN [Suspect]
     Route: 042
  8. CYCLOPHOSPHAMIDE [Suspect]
     Route: 042
  9. PEGFILGRASTIM [Concomitant]
     Route: 065
  10. DOXORUBICIN HCL [Suspect]
     Dosage: CYCLE 6
     Route: 042
  11. DOXORUBICIN HCL [Suspect]
     Dosage: CYCLE 3
     Route: 042
  12. DOXORUBICIN HCL [Suspect]
     Dosage: CYCLE 2
     Route: 042
  13. VINBLASTINE [Suspect]
     Route: 042
  14. CISPLATIN [Suspect]
     Route: 042
  15. CISPLATIN [Suspect]
     Route: 042
  16. BLEOMYCIN SULFATE [Suspect]
     Route: 042
  17. PEGFILGRASTIM [Concomitant]
     Route: 065
  18. CYCLOPHOSPHAMIDE [Suspect]
     Route: 042
  19. ETOPOSIDE [Suspect]
     Route: 042
  20. ETOPOSIDE [Suspect]
     Route: 042
  21. PEGFILGRASTIM [Concomitant]
     Indication: PROPHYLAXIS
     Route: 065
  22. VINBLASTINE [Suspect]
     Route: 042
  23. CYCLOPHOSPHAMIDE [Suspect]
     Route: 042
  24. BLEOMYCIN SULFATE [Suspect]
     Route: 042
  25. BLEOMYCIN SULFATE [Suspect]
     Route: 042
  26. DOXORUBICIN HCL [Suspect]
     Indication: OVARIAN CANCER
     Dosage: CYCLE 1
     Route: 042
  27. DOXORUBICIN HCL [Suspect]
     Dosage: CYCLE 5
     Route: 042
  28. ETOPOSIDE [Suspect]
     Route: 042
  29. VINBLASTINE [Suspect]
     Route: 042
  30. CISPLATIN [Suspect]
     Route: 042
  31. CYCLOPHOSPHAMIDE [Suspect]
     Route: 042
  32. BLEOMYCIN SULFATE [Suspect]
     Indication: OVARIAN CANCER
     Route: 042
  33. ETOPOSIDE [Suspect]
     Indication: OVARIAN CANCER
     Route: 042
  34. ETOPOSIDE [Suspect]
     Route: 042
  35. PEGFILGRASTIM [Concomitant]
     Route: 065
  36. PEGFILGRASTIM [Concomitant]
     Route: 065
  37. VINBLASTINE [Suspect]
     Indication: OVARIAN CANCER
     Route: 042
  38. VINBLASTINE [Suspect]
     Route: 042
  39. CISPLATIN [Suspect]
     Indication: OVARIAN CANCER
     Route: 042
  40. CISPLATIN [Suspect]
     Route: 042
  41. CYCLOPHOSPHAMIDE [Suspect]
     Route: 042
  42. BLEOMYCIN SULFATE [Suspect]
     Route: 042

REACTIONS (3)
  - CELLULITIS [None]
  - MUCOSAL INFLAMMATION [None]
  - PANCYTOPENIA [None]
